FAERS Safety Report 14765680 (Version 1)
Quarter: 2018Q2

REPORT INFORMATION
  Report Type: Spontaneous
  Country: US (occurrence: US)
  Receive Date: 20180410
  Receipt Date: 20180410
  Transmission Date: 20180711
  Serious: No
  Sender: FDA-Public Use
  Company Number: None

PATIENT
  Age: 65 Year
  Weight: 44.1 kg

DRUGS (2)
  1. TRIAMCINOCLONE ACETONIDE [Suspect]
     Active Substance: TRIAMCINOLONE ACETONIDE
     Indication: CARPAL TUNNEL SYNDROME
     Dosage: ?          QUANTITY:1 INJECTION(S);OTHER FREQUENCY:ONCE;OTHER ROUTE:DON^T KNOW?
     Dates: start: 20180403
  2. XANAX [Concomitant]
     Active Substance: ALPRAZOLAM

REACTIONS (8)
  - Insomnia [None]
  - Dizziness [None]
  - Nausea [None]
  - Eye pain [None]
  - Hot flush [None]
  - Retching [None]
  - Migraine [None]
  - Impaired driving ability [None]

NARRATIVE: CASE EVENT DATE: 20180403
